FAERS Safety Report 8487799-2 (Version None)
Quarter: 2012Q2

REPORT INFORMATION
  Report Type: 
  Country: None (occurrence: None)
  Receive Date: 20120402
  Receipt Date: 20101025
  Transmission Date: 20120825
  Serious: Yes (Other)
  Sender: FDA-Public Use
  Company Number: PHHY2010US72238

PATIENT
  Age: 64 Year
  Sex: Male

DRUGS (6)
  1. EXFORGE [Suspect]
     Dosage: 160/5 MG
     Dates: start: 20101014, end: 20101020
  2. CENTRUM SILVER (ASCORBIC ACID, CALCIUM, MINERALS NOS, RETINOL, TOCOPHE [Concomitant]
  3. LEVSIN (HYOSCYAMINE SULFATE) [Concomitant]
  4. ASTHMA INHALER (ASTHMA INHALER) [Concomitant]
  5. ASPIRIN [Concomitant]
  6. METAMUCIL (ISPAGHULA, PLANTAGO OVATA) [Concomitant]

REACTIONS (5)
  - SWELLING [None]
  - VERTIGO [None]
  - HYPERSENSITIVITY [None]
  - HEADACHE [None]
  - TINNITUS [None]
